FAERS Safety Report 4739009-7 (Version None)
Quarter: 2005Q3

REPORT INFORMATION
  Report Type: 
  Country: None (occurrence: None)
  Receive Date: 20050801
  Receipt Date: 20041101
  Transmission Date: 20060218
  Serious: Yes (Other)
  Sender: FDA-Public Use
  Company Number: 140597USA

PATIENT
  Sex: Female

DRUGS (2)
  1. METOCLOPRAMIDE [Suspect]
     Indication: GASTRITIS
     Dates: start: 19960426, end: 20020801
  2. METOCLOPRAMIDE [Suspect]
     Indication: GASTROOESOPHAGEAL REFLUX DISEASE
     Dates: start: 19960426, end: 20020801

REACTIONS (5)
  - DYSKINESIA [None]
  - GRIMACING [None]
  - TARDIVE DYSKINESIA [None]
  - TONGUE BITING [None]
  - TRISMUS [None]
